FAERS Safety Report 12244662 (Version 1)
Quarter: 2016Q2

REPORT INFORMATION
  Report Type: Spontaneous
  Country: US (occurrence: None)
  Receive Date: 20160406
  Receipt Date: 20160406
  Transmission Date: 20160815
  Serious: Yes (Other)
  Sender: FDA-Public Use
  Company Number: None

PATIENT
  Age: 55 Year
  Sex: Female
  Weight: 79.38 kg

DRUGS (4)
  1. CYMBALTA [Suspect]
     Active Substance: DULOXETINE HYDROCHLORIDE
     Indication: DEPRESSION
     Dosage: ONCE A DAY TAKEN BY MOUTH
     Route: 048
     Dates: start: 20080115, end: 20151229
  2. SYNTHROID [Concomitant]
     Active Substance: LEVOTHYROXINE SODIUM
  3. DAILY VITAMIN [Concomitant]
     Active Substance: VITAMINS
  4. BUPROPION. [Concomitant]
     Active Substance: BUPROPION

REACTIONS (3)
  - Product substitution issue [None]
  - Thyroid function test abnormal [None]
  - Thyroid disorder [None]

NARRATIVE: CASE EVENT DATE: 20081101
